FAERS Safety Report 21760400 (Version 1)
Quarter: 2022Q4

REPORT INFORMATION
  Report Type: Spontaneous
  Country: US (occurrence: None)
  Receive Date: 20221220
  Receipt Date: 20221220
  Transmission Date: 20230113
  Serious: Yes (unspecified)
  Sender: FDA-Public Use
  Company Number: None

PATIENT
  Age: 47 Year
  Sex: Male

DRUGS (1)
  1. CABENUVA [Suspect]
     Active Substance: CABOTEGRAVIR\RILPIVIRINE
     Indication: HIV infection
     Dosage: 6 ML INTRAOCULAR MONTHLY
     Route: 031

REACTIONS (3)
  - Injection site mass [None]
  - Injection site pain [None]
  - Injection site inflammation [None]

NARRATIVE: CASE EVENT DATE: 20221104
